FAERS Safety Report 8068527-1 (Version None)
Quarter: 2012Q1

REPORT INFORMATION
  Report Type: 
  Country: None (occurrence: None)
  Receive Date: 20120124
  Receipt Date: 20111102
  Transmission Date: 20120608
  Serious: No
  Sender: FDA-Public Use
  Company Number: US-AMGEN-USASP2011056877

PATIENT
  Sex: Female

DRUGS (2)
  1. PROLIA [Suspect]
     Indication: PRODUCT USED FOR UNKNOWN INDICATION
     Dosage: 60 MG, Q6MO
  2. STEROID ANTIBACTERIALS [Concomitant]

REACTIONS (2)
  - WOUND [None]
  - HEADACHE [None]
